FAERS Safety Report 24256760 (Version 2)
Quarter: 2024Q3

REPORT INFORMATION
  Report Type: Report from Study
  Country: US (occurrence: US)
  Receive Date: 20240828
  Receipt Date: 20240829
  Transmission Date: 20241016
  Serious: Yes (Hospitalization)
  Sender: ROCHE
  Company Number: US-ROCHE-10000066552

PATIENT
  Age: 1 Year
  Sex: Male
  Weight: 11.2 kg

DRUGS (2)
  1. EVRYSDI [Suspect]
     Active Substance: RISDIPLAM
     Indication: Spinal muscular atrophy
     Route: 048
     Dates: start: 20230607
  2. EVRYSDI [Suspect]
     Active Substance: RISDIPLAM
     Route: 050

REACTIONS (1)
  - Parainfluenzae virus infection [Recovering/Resolving]

NARRATIVE: CASE EVENT DATE: 20240821
